FAERS Safety Report 19847588 (Version 2)
Quarter: 2021Q4

REPORT INFORMATION
  Report Type: Spontaneous
  Country: US (occurrence: US)
  Receive Date: 20210917
  Receipt Date: 20211005
  Transmission Date: 20220303
  Serious: No
  Sender: FDA-Public Use
  Company Number: US-SAGE-2021SAGE000088

PATIENT
  Age: 32 Year
  Sex: Female
  Weight: 73.47 kg

DRUGS (3)
  1. ZULRESSO [Suspect]
     Active Substance: BREXANOLONE
     Indication: Perinatal depression
     Dosage: UNK
     Route: 042
     Dates: start: 20210903, end: 20210904
  2. ZULRESSO [Suspect]
     Active Substance: BREXANOLONE
     Dosage: UNK
     Route: 042
     Dates: start: 20210904, end: 20210906
  3. APAP [Concomitant]
     Active Substance: ACETAMINOPHEN
     Indication: Migraine
     Route: 065

REACTIONS (8)
  - Migraine [Recovered/Resolved]
  - Dyspnoea [Recovered/Resolved]
  - Disorientation [Recovered/Resolved]
  - Speech disorder [Recovered/Resolved]
  - Fatigue [Recovered/Resolved]
  - Sedation complication [Recovered/Resolved]
  - Dizziness [Recovered/Resolved]
  - Heart rate increased [Recovered/Resolved]

NARRATIVE: CASE EVENT DATE: 20210904
